FAERS Safety Report 5398825-1 (Version None)
Quarter: 2007Q3

REPORT INFORMATION
  Report Type: 
  Country: None (occurrence: None)
  Receive Date: 20070725
  Receipt Date: 20070725
  Transmission Date: 20080115
  Serious: Yes (Hospitalization)
  Sender: FDA-Public Use
  Company Number: None

PATIENT
  Age: 13 Year
  Sex: Female
  Weight: 68.0396 kg

DRUGS (7)
  1. STRATTERA [Suspect]
     Indication: IMPULSIVE BEHAVIOUR
     Dosage: 18MG @ 1PM  PO
     Route: 048
     Dates: start: 20070522, end: 20070613
  2. STRATTERA [Suspect]
     Dosage: 40MG @ 8AM  PO
     Route: 048
     Dates: start: 20070508, end: 20070613
  3. ABILIFY [Concomitant]
  4. GEODON [Concomitant]
  5. KLONOPIN [Concomitant]
  6. LACTAID [Concomitant]
  7. HALDOL [Concomitant]

REACTIONS (1)
  - URINARY RETENTION [None]
